FAERS Safety Report 7459351-9 (Version None)
Quarter: 2011Q2

REPORT INFORMATION
  Report Type: 
  Country: None (occurrence: None)
  Receive Date: 20110504
  Receipt Date: 20110504
  Transmission Date: 20111010
  Serious: Yes (Life-Threatening, Hospitalization, Disabling, Other)
  Sender: FDA-Public Use
  Company Number: None

PATIENT
  Age: 33 Year
  Sex: Female
  Weight: 55.3388 kg

DRUGS (1)
  1. IMPLANON [Suspect]
     Indication: CONTRACEPTION
     Dosage: 68MG IMPLANT
     Dates: start: 20101001, end: 20110413

REACTIONS (9)
  - ABDOMINAL PAIN [None]
  - NEOPLASM MALIGNANT [None]
  - PELVIC MASS [None]
  - POLLAKIURIA [None]
  - GLUCOSE TOLERANCE IMPAIRED [None]
  - WEIGHT DECREASED [None]
  - NAUSEA [None]
  - PROCEDURAL PAIN [None]
  - PELVIC PAIN [None]
